FAERS Safety Report 19212629 (Version 1)
Quarter: 2021Q2

REPORT INFORMATION
  Report Type: Spontaneous
  Country: US (occurrence: US)
  Receive Date: 20210504
  Receipt Date: 20210504
  Transmission Date: 20210717
  Serious: Yes (Hospitalization)
  Sender: FDA-Public Use
  Company Number: US-MYLANLABS-2021M1026453

PATIENT
  Age: 37 Year
  Sex: Female

DRUGS (2)
  1. CLOZAPINE. [Suspect]
     Active Substance: CLOZAPINE
     Indication: SCHIZOPHRENIA
     Dosage: 700 MILLIGRAM, QD
     Route: 065
  2. PALIPERIDONE PALMITATE [Concomitant]
     Active Substance: PALIPERIDONE PALMITATE
     Indication: SCHIZOPHRENIA
     Dosage: 156 MILLIGRAM, MONTHLY
     Route: 065

REACTIONS (5)
  - Suicidal ideation [Recovered/Resolved]
  - Ideas of reference [Recovered/Resolved]
  - Drug interaction [Recovered/Resolved]
  - Hallucination, auditory [Recovered/Resolved]
  - Drug level below therapeutic [Recovered/Resolved]
